FAERS Safety Report 7476028-4 (Version None)
Quarter: 2011Q2

REPORT INFORMATION
  Report Type: 
  Country: None (occurrence: None)
  Receive Date: 20110505
  Receipt Date: 20110429
  Transmission Date: 20111010
  Serious: Yes (Hospitalization)
  Sender: FDA-Public Use
  Company Number: 904732

PATIENT
  Age: 57 Year
  Sex: Female

DRUGS (5)
  1. FONDAPARINUX SODIUM [Suspect]
     Indication: PULMONARY EMBOLISM
  2. FONDAPARINUX SODIUM [Suspect]
     Indication: POST PROCEDURAL COMPLICATION
  3. WARFARIN SODIUM [Suspect]
     Indication: PRODUCT USED FOR UNKNOWN INDICATION
  4. HEPARIN SODIUM [Suspect]
     Indication: PULMONARY EMBOLISM
  5. HEPARIN SODIUM [Suspect]
     Indication: POST PROCEDURAL COMPLICATION

REACTIONS (4)
  - HEPARIN-INDUCED THROMBOCYTOPENIA [None]
  - FALL [None]
  - ISCHAEMIC STROKE [None]
  - INFECTION [None]
